FAERS Safety Report 4476763-6 (Version None)
Quarter: 2004Q4

REPORT INFORMATION
  Report Type: 
  Country: None (occurrence: None)
  Receive Date: 20041015
  Receipt Date: 20041015
  Transmission Date: 20050328
  Serious: Yes (Other)
  Sender: FDA-Public Use
  Company Number: None

PATIENT
  Age: 64 Year
  Sex: Male
  Weight: 87.0906 kg

DRUGS (2)
  1. PERCOCET [Suspect]
     Indication: PAIN
     Dosage: 10/325 Q 6 HRS
  2. PERCOCET [Suspect]
     Indication: POSTOPERATIVE ANALGESIA
     Dosage: 10/325 Q 6 HRS

REACTIONS (2)
  - NAUSEA [None]
  - VOMITING [None]
